FAERS Safety Report 10305448 (Version 3)
Quarter: 2014Q4

REPORT INFORMATION
  Report Type: Report from Study
  Country: US (occurrence: US)
  Receive Date: 20140715
  Receipt Date: 20141001
  Transmission Date: 20150528
  Serious: Yes (Hospitalization, Other)
  Sender: FDA-Public Use
  Company Number: US-BAYER-2014-105157

PATIENT
  Age: 53 Year
  Sex: Female

DRUGS (2)
  1. STIVARGA [Suspect]
     Active Substance: REGORAFENIB
     Indication: COLORECTAL CANCER
     Dosage: 120 MG, QD
     Route: 048
     Dates: start: 201408, end: 20140922
  2. STIVARGA [Suspect]
     Active Substance: REGORAFENIB
     Indication: COLORECTAL CANCER
     Dosage: 160 MG, QD
     Route: 048
     Dates: start: 201406, end: 20140727

REACTIONS (14)
  - Stomatitis [None]
  - Dehydration [None]
  - Dehydration [Recovering/Resolving]
  - Weight decreased [Not Recovered/Not Resolved]
  - Asthenia [None]
  - Faecal incontinence [None]
  - Asthenia [Recovering/Resolving]
  - Stomatitis [Recovering/Resolving]
  - Diarrhoea [None]
  - Pain [None]
  - Eating disorder [None]
  - Diarrhoea [None]
  - Nausea [None]
  - Oral mucosal blistering [None]

NARRATIVE: CASE EVENT DATE: 201407
